FAERS Safety Report 4355561-8 (Version None)
Quarter: 2004Q2

REPORT INFORMATION
  Report Type: 
  Country: None (occurrence: None)
  Receive Date: 20040505
  Receipt Date: 20040423
  Transmission Date: 20050107
  Serious: Yes (Death)
  Sender: FDA-Public Use
  Company Number: 04P-114-0251882-00

PATIENT
  Age: 52 Year
  Sex: Female

DRUGS (3)
  1. DEPAKENE [Suspect]
     Indication: EPILEPSY
     Dates: start: 20030801, end: 20031004
  2. CARBAMAZEPINE [Concomitant]
  3. OXCARBAZEPINE [Concomitant]

REACTIONS (5)
  - APATHY [None]
  - APHASIA [None]
  - EXANTHEM [None]
  - FATIGUE [None]
  - HEPATIC FAILURE [None]
